FAERS Safety Report 24671595 (Version 1)
Quarter: 2024Q4

REPORT INFORMATION
  Report Type: Spontaneous
  Country: IL (occurrence: IL)
  Receive Date: 20241127
  Receipt Date: 20241127
  Transmission Date: 20250114
  Serious: Yes (Other)
  Sender: NOVARTIS
  Company Number: IL-002147023-NVSC2024IL225647

PATIENT
  Sex: Male

DRUGS (1)
  1. MAYZENT [Suspect]
     Active Substance: SIPONIMOD
     Indication: Multiple sclerosis
     Dosage: UNK (1 YEAR AGO)
     Route: 065

REACTIONS (2)
  - Liver function test increased [Unknown]
  - Lymphocyte count [Unknown]
